FAERS Safety Report 13088628 (Version 1)
Quarter: 2016Q4

REPORT INFORMATION
  Report Type: Spontaneous
  Country: US (occurrence: US)
  Receive Date: 20161230
  Receipt Date: 20161230
  Transmission Date: 20170207
  Serious: Yes (Other)
  Sender: FDA-Public Use
  Company Number: None

PATIENT
  Age: 66 Year
  Sex: Female
  Weight: 57.15 kg

DRUGS (9)
  1. EMERGEN-C [Concomitant]
     Active Substance: VITAMINS
  2. PESSARY [Concomitant]
  3. HYDROCOD/APAP [Concomitant]
  4. ASPIRIN. [Concomitant]
     Active Substance: ASPIRIN
  5. NIACIN. [Concomitant]
     Active Substance: NIACIN
  6. METHYLPHENIDATE. [Concomitant]
     Active Substance: METHYLPHENIDATE
  7. IBUPROFEN. [Concomitant]
     Active Substance: IBUPROFEN
  8. LATANOPROST AKORN [Suspect]
     Active Substance: LATANOPROST
     Indication: GLAUCOMA
     Dosage: ?          QUANTITY:1 DROP(S);?
     Route: 047
     Dates: start: 20160229, end: 20161206
  9. PREMARIN [Concomitant]
     Active Substance: ESTROGENS, CONJUGATED

REACTIONS (4)
  - Ocular hyperaemia [None]
  - Eye irritation [None]
  - Dry skin [None]
  - Foreign body sensation in eyes [None]

NARRATIVE: CASE EVENT DATE: 20161001
